FAERS Safety Report 12697976 (Version 1)
Quarter: 2016Q3

REPORT INFORMATION
  Report Type: Spontaneous
  Country: US (occurrence: None)
  Receive Date: 20160829
  Receipt Date: 20160829
  Transmission Date: 20161109
  Serious: Yes (Hospitalization)
  Sender: FDA-Public Use
  Company Number: None

PATIENT
  Age: 76 Year
  Sex: Female

DRUGS (18)
  1. BOSULIF [Suspect]
     Active Substance: BOSUTINIB MONOHYDRATE
     Indication: NEOPLASM MALIGNANT
     Route: 048
     Dates: start: 20141206
  2. FLOVENT [Concomitant]
     Active Substance: FLUTICASONE PROPIONATE
  3. ASPIRIN. [Concomitant]
     Active Substance: ASPIRIN
  4. ALBUTEROL. [Concomitant]
     Active Substance: ALBUTEROL
  5. TYLENOL [Concomitant]
     Active Substance: ACETAMINOPHEN
  6. MELATONIN [Concomitant]
     Active Substance: MELATONIN
  7. LASIX [Concomitant]
     Active Substance: FUROSEMIDE
  8. AMLODIPINE [Concomitant]
     Active Substance: AMLODIPINE BESYLATE
  9. AMITRIPTYLIN [Concomitant]
     Active Substance: AMITRIPTYLINE
  10. PREDNISONE. [Concomitant]
     Active Substance: PREDNISONE
  11. NYSTATIN. [Concomitant]
     Active Substance: NYSTATIN
  12. LIPITOR [Concomitant]
     Active Substance: ATORVASTATIN CALCIUM
  13. VITAMIN D2 [Concomitant]
     Active Substance: ERGOCALCIFEROL
  14. ACIDOPHLUS [Concomitant]
  15. CHERRY LIQ FLAVOR [Concomitant]
  16. ALLOPURINOL. [Concomitant]
     Active Substance: ALLOPURINOL
  17. PRENATAL [Concomitant]
     Active Substance: VITAMINS
  18. POTASSIUM [Concomitant]
     Active Substance: POTASSIUM

REACTIONS (3)
  - Fluid retention [None]
  - Dyspnoea [None]
  - Gait disturbance [None]

NARRATIVE: CASE EVENT DATE: 20160823
